FAERS Safety Report 21393930 (Version 2)
Quarter: 2022Q4

REPORT INFORMATION
  Report Type: Report from Study
  Country: EG (occurrence: EG)
  Receive Date: 20220930
  Receipt Date: 20221008
  Transmission Date: 20230113
  Serious: Yes (Other)
  Sender: FDA-Public Use
  Company Number: EG-NOVARTISPH-NVSC2022EG218836

PATIENT
  Sex: Female

DRUGS (5)
  1. COSENTYX [Suspect]
     Active Substance: SECUKINUMAB
     Indication: Psoriatic arthropathy
     Dosage: 1 DOSAGE FORM, Q3W (EVERY WEEK FOR 3 WEEKS AS A LOADING DOSE THEN, 1 PREFILLED PEN EVERY MONTH)
     Route: 065
     Dates: start: 201608, end: 202202
  2. COSENTYX [Suspect]
     Active Substance: SECUKINUMAB
     Dosage: 1 DOSAGE FORM, Q3W (EVERY WEEK FOR 3 WEEKS AS A LOADING DOSE THEN, 1 PREFILLED PEN EVERY MONTH)
     Route: 065
     Dates: start: 202205, end: 202205
  3. COSENTYX [Suspect]
     Active Substance: SECUKINUMAB
     Dosage: UNK
     Route: 065
     Dates: start: 202009, end: 202202
  4. VITAMINS [Concomitant]
     Active Substance: VITAMINS
     Indication: Supplementation therapy
     Dosage: UNK, QD
     Route: 065
     Dates: start: 2008
  5. VITAMIN C [Concomitant]
     Active Substance: ASCORBIC ACID
     Indication: Supplementation therapy
     Dosage: UNK, QD
     Route: 065
     Dates: start: 2021

REACTIONS (18)
  - Depression [Not Recovered/Not Resolved]
  - Psoriasis [Not Recovered/Not Resolved]
  - Pain [Not Recovered/Not Resolved]
  - Fatigue [Not Recovered/Not Resolved]
  - Dysstasia [Not Recovered/Not Resolved]
  - Blood cholesterol increased [Unknown]
  - Vitamin D deficiency [Recovering/Resolving]
  - C-reactive protein increased [Not Recovered/Not Resolved]
  - Insomnia [Not Recovered/Not Resolved]
  - COVID-19 [Recovered/Resolved]
  - Off label use [Recovered/Resolved]
  - Anosmia [Recovered/Resolved]
  - Cough [Recovered/Resolved]
  - Oxygen saturation decreased [Recovered/Resolved]
  - Rhinorrhoea [Recovered/Resolved]
  - Feeding disorder [Recovered/Resolved]
  - Respiratory tract infection [Unknown]
  - Anaemia [Unknown]

NARRATIVE: CASE EVENT DATE: 20160101
